FAERS Safety Report 6699146-7 (Version None)
Quarter: 2010Q2

REPORT INFORMATION
  Report Type: 
  Country: None (occurrence: None)
  Receive Date: 20100427
  Receipt Date: 20100416
  Transmission Date: 20101027
  Serious: Yes (Death, Hospitalization, Other)
  Sender: FDA-Public Use
  Company Number: SE-SANOFI-AVENTIS-2009SA001039

PATIENT

DRUGS (8)
  1. OXALIPLATIN [Suspect]
     Route: 041
     Dates: start: 20090714, end: 20090714
  2. OXALIPLATIN [Suspect]
     Route: 041
     Dates: start: 20091006, end: 20091006
  3. FOLINIC ACID [Suspect]
     Route: 065
     Dates: start: 20090714, end: 20090714
  4. FOLINIC ACID [Suspect]
     Route: 065
     Dates: start: 20091006, end: 20091006
  5. FLUOROURACIL [Suspect]
     Route: 065
     Dates: start: 20090714, end: 20090714
  6. FLUOROURACIL [Suspect]
     Route: 065
     Dates: start: 20091006, end: 20091006
  7. BEVACIZUMAB [Suspect]
     Route: 065
     Dates: start: 20090714, end: 20090714
  8. BEVACIZUMAB [Suspect]
     Route: 065
     Dates: start: 20091006, end: 20091006

REACTIONS (2)
  - PULMONARY EMBOLISM [None]
  - THROMBOSIS [None]
